FAERS Safety Report 5248719-7 (Version None)
Quarter: 2007Q1

REPORT INFORMATION
  Report Type: 
  Country: None (occurrence: None)
  Receive Date: 20070223
  Receipt Date: 20070212
  Transmission Date: 20070707
  Serious: Yes (Other)
  Sender: FDA-Public Use
  Company Number: B0458984A

PATIENT
  Sex: 0

DRUGS (4)
  1. ALKERAN [Suspect]
     Indication: MULTIPLE MYELOMA
     Dosage: .25 MG/KG/CYCLIC/ORAL
     Route: 048
  2. PREDNISONE [Suspect]
     Indication: MULTIPLE MYELOMA
     Dosage: 1.5 MG/KG/CYCLIC/ORAL
     Route: 048
  3. THALIDOMIDE (FORMULATION UNKNOWN) (THALIDOMIDE) [Suspect]
     Indication: MULTIPLE MYELOMA
     Dosage: UNK/CYCLIC/UNKNOWN
  4. DEFIBROTIDE (FORMULATION UNKNOWN) (DEFIBROTIDE) [Suspect]
     Indication: MULTIPLE MYELOMA
     Dosage: UNK/CYCLIC/UNKNOWN

REACTIONS (2)
  - DRUG TOXICITY [None]
  - ILEUS [None]
